FAERS Safety Report 7712819-X (Version None)
Quarter: 2011Q3

REPORT INFORMATION
  Report Type: 
  Country: None (occurrence: None)
  Receive Date: 20110826
  Receipt Date: 20110815
  Transmission Date: 20111222
  Serious: Yes (Other)
  Sender: FDA-Public Use
  Company Number: PHHY2011DK42345

PATIENT
  Sex: Male

DRUGS (2)
  1. SIMULECT [Suspect]
     Indication: METASTATIC RENAL CELL CARCINOMA
     Dosage: UNK UKN, UNK
     Route: 058
     Dates: start: 20070303, end: 20070427
  2. MULTIFERON [Concomitant]
     Indication: METASTATIC RENAL CELL CARCINOMA
     Dosage: UNK UKN, UNK
     Route: 058
     Dates: start: 20070303, end: 20070427

REACTIONS (4)
  - SUBCLAVIAN VEIN THROMBOSIS [None]
  - OEDEMA PERIPHERAL [None]
  - HALLUCINATION [None]
  - PAIN [None]
